FAERS Safety Report 24686523 (Version 1)
Quarter: 2024Q4

REPORT INFORMATION
  Report Type: Spontaneous
  Country: GB (occurrence: GB)
  Receive Date: 20241202
  Receipt Date: 20241202
  Transmission Date: 20250114
  Serious: Yes (Other)
  Sender: TORRENT PHARMA INC.
  Company Number: None

PATIENT
  Age: 54 Year
  Sex: Female
  Weight: 82 kg

DRUGS (8)
  1. MONTELUKAST [Suspect]
     Active Substance: MONTELUKAST
     Indication: Ill-defined disorder
     Dosage: AT NIGHT
     Route: 065
     Dates: start: 20241015
  2. FLUTICASONE FUROATE [Concomitant]
     Active Substance: FLUTICASONE FUROATE
     Indication: Ill-defined disorder
     Dosage: ONE DOSE EACH NOSTRIL DAILY
     Route: 065
     Dates: start: 20240304
  3. ACETAMINOPHEN [Concomitant]
     Active Substance: ACETAMINOPHEN
     Indication: Ill-defined disorder
     Dosage: TAKE 1 OR 2 4 TIMES/DAY
     Route: 065
     Dates: start: 20240524
  4. PROPRANOLOL [Concomitant]
     Active Substance: PROPRANOLOL HYDROCHLORIDE
     Indication: Ill-defined disorder
     Dosage: 1 OR 2 PER DAY
     Route: 065
     Dates: start: 20240304
  5. QVAR [Concomitant]
     Active Substance: BECLOMETHASONE DIPROPIONATE
     Indication: Ill-defined disorder
     Dosage: INHALE TWO DOSES TWICE DAILY (INHALE SLOWLY AND...
     Route: 055
     Dates: start: 20240123
  6. ALBUTEROL [Concomitant]
     Active Substance: ALBUTEROL
     Indication: Ill-defined disorder
     Dosage: INHALE 1-2 DOSES AS NEEDED (INHALE SLOWLY AND S...
     Route: 055
     Dates: start: 20240216
  7. THEICAL-D3 [Concomitant]
     Indication: Ill-defined disorder
     Dosage: TAKE ONE DAILY
     Route: 065
     Dates: start: 20240611
  8. TRAMADOL [Concomitant]
     Active Substance: TRAMADOL
     Indication: Ill-defined disorder
     Dosage: ONE OR TWO FOUR TIMES DAILY
     Route: 065
     Dates: start: 20240524

REACTIONS (1)
  - Peripheral swelling [Recovered/Resolved]
